FAERS Safety Report 6936679-X (Version None)
Quarter: 2010Q3

REPORT INFORMATION
  Report Type: 
  Country: None (occurrence: None)
  Receive Date: 20100823
  Receipt Date: 20100813
  Transmission Date: 20110219
  Serious: Yes (Other)
  Sender: FDA-Public Use
  Company Number: DE-ROCHE-721796

PATIENT
  Age: 43 Year
  Sex: Female

DRUGS (1)
  1. AVASTIN [Suspect]
     Indication: GLIOBLASTOMA MULTIFORME
     Dosage: 5 APPLICATIONS RECEIVED
     Route: 065
     Dates: end: 20100709

REACTIONS (3)
  - DRUG INEFFECTIVE [None]
  - ENTEROCOLITIS [None]
  - RECTAL HAEMORRHAGE [None]
